FAERS Safety Report 12137518 (Version 5)
Quarter: 2020Q3

REPORT INFORMATION
  Report Type: Report from Study
  Country: US (occurrence: US)
  Receive Date: 20160302
  Receipt Date: 20160619
  Transmission Date: 20201105
  Serious: Yes (Death, Hospitalization)
  Sender: FDA-Public Use
  Company Number: US-JNJFOC-20151223672

PATIENT
  Age: 70 Year
  Sex: Male
  Weight: 81 kg

DRUGS (2)
  1. DARATUMUMAB [Suspect]
     Active Substance: DARATUMUMAB
     Indication: PLASMA CELL MYELOMA
     Route: 042
     Dates: start: 20151218, end: 20151218
  2. DARATUMUMAB [Suspect]
     Active Substance: DARATUMUMAB
     Route: 042

REACTIONS (2)
  - Disease progression [Fatal]
  - Pyrexia [Recovered/Resolved]

NARRATIVE: CASE EVENT DATE: 20151223
